FAERS Safety Report 19934080 (Version 4)
Quarter: 2023Q1

REPORT INFORMATION
  Report Type: Spontaneous
  Country: PL (occurrence: PL)
  Receive Date: 20211008
  Receipt Date: 20230203
  Transmission Date: 20230417
  Serious: Yes (Life-Threatening, Other)
  Sender: FDA-Public Use
  Company Number: PL-ZENTIVA-2021-ZT-006891

PATIENT
  Age: 70 Year
  Sex: Male

DRUGS (3)
  1. IMATINIB [Suspect]
     Active Substance: IMATINIB
     Indication: Metastases to liver
     Dosage: 800 MILLIGRAM, QD,
     Route: 065
  2. IMATINIB [Suspect]
     Active Substance: IMATINIB
     Indication: Gastrointestinal stromal tumour
     Dosage: 400 MILLIGRAM, QD,
     Route: 065
     Dates: start: 201801
  3. IMATINIB [Suspect]
     Active Substance: IMATINIB
     Dosage: 600 MILLIGRAM, QD,
     Route: 065
     Dates: start: 201810

REACTIONS (7)
  - Drug resistance [Unknown]
  - Skin toxicity [Unknown]
  - Disease progression [Unknown]
  - Malignant neoplasm progression [Unknown]
  - Gastrointestinal stromal tumour [Unknown]
  - Drug ineffective [Unknown]
  - Fluid retention [Unknown]
